FAERS Safety Report 10501162 (Version 3)
Quarter: 2015Q2

REPORT INFORMATION
  Report Type: Spontaneous
  Country: US (occurrence: US)
  Receive Date: 20141007
  Receipt Date: 20150626
  Transmission Date: 20150821
  Serious: Yes (Other)
  Sender: FDA-Public Use
  Company Number: US-UCBSA-2014013029

PATIENT
  Age: 44 Year
  Sex: Female
  Weight: 82 kg

DRUGS (2)
  1. CIMZIA [Suspect]
     Active Substance: CERTOLIZUMAB PEGOL
     Dosage: 400 MG, EV 2 WEEKS(QOW)
     Route: 058
  2. CIMZIA [Suspect]
     Active Substance: CERTOLIZUMAB PEGOL
     Indication: CROHN^S DISEASE
     Dosage: 400 MG, EV 2 WEEKS(QOW)
     Route: 058
     Dates: start: 20090303, end: 201409

REACTIONS (4)
  - Crohn^s disease [Recovered/Resolved]
  - Abortion [Not Recovered/Not Resolved]
  - Off label use [Unknown]
  - Pregnancy [Unknown]

NARRATIVE: CASE EVENT DATE: 2009
